FAERS Safety Report 6320834-6 (Version None)
Quarter: 2009Q3

REPORT INFORMATION
  Report Type: 
  Country: None (occurrence: None)
  Receive Date: 20090822
  Receipt Date: 20081217
  Transmission Date: 20100115
  Serious: No
  Sender: FDA-Public Use
  Company Number: US-ABBOTT-08P-163-0492375-00

PATIENT
  Sex: Male
  Weight: 96.702 kg

DRUGS (1)
  1. NIASPAN [Suspect]
     Indication: HIGH DENSITY LIPOPROTEIN DECREASED
     Route: 048

REACTIONS (7)
  - DEHYDRATION [None]
  - DYSPNOEA [None]
  - HYPOTENSION [None]
  - INCONTINENCE [None]
  - PRURITUS [None]
  - RASH ERYTHEMATOUS [None]
  - SKIN BURNING SENSATION [None]
